FAERS Safety Report 13077560 (Version 1)
Quarter: 2016Q4

REPORT INFORMATION
  Report Type: Spontaneous
  Country: US (occurrence: US)
  Receive Date: 20161231
  Receipt Date: 20161231
  Transmission Date: 20170207
  Serious: No
  Sender: FDA-Public Use
  Company Number: US-DRREDDYS-USA/USA/16/0083705

PATIENT
  Age: 44 Year
  Sex: Female
  Weight: 45.36 kg

DRUGS (1)
  1. HABITROL [Suspect]
     Active Substance: NICOTINE
     Indication: SMOKING CESSATION THERAPY
     Route: 062
     Dates: start: 20160913

REACTIONS (5)
  - Weight increased [Unknown]
  - Treatment noncompliance [Unknown]
  - Overdose [Unknown]
  - Nightmare [Recovered/Resolved]
  - Product quality issue [Unknown]
